FAERS Safety Report 6581088-9 (Version None)
Quarter: 2010Q1

REPORT INFORMATION
  Report Type: 
  Country: None (occurrence: None)
  Receive Date: 20100215
  Receipt Date: 20100203
  Transmission Date: 20100710
  Serious: Yes (Disabling, Other)
  Sender: FDA-Public Use
  Company Number: PHEH2009US11673

PATIENT
  Sex: Male

DRUGS (5)
  1. EXJADE [Suspect]
     Dosage: 3125 MG, QD
     Route: 048
     Dates: start: 20070420, end: 20090831
  2. HYDROXYUREA [Concomitant]
     Dosage: UNK
  3. OXYCODONE HCL [Concomitant]
     Dosage: UNK
  4. AMITRIPTYLINE HCL [Concomitant]
     Dosage: UNK
  5. DESFERAL [Concomitant]

REACTIONS (11)
  - ENTEROCUTANEOUS FISTULA [None]
  - ILEOSTOMY [None]
  - MALNUTRITION [None]
  - PAIN [None]
  - POST PROCEDURAL COMPLICATION [None]
  - POSTOPERATIVE WOUND INFECTION [None]
  - SEPSIS [None]
  - SURGERY [None]
  - UMBILICAL HERNIA [None]
  - UMBILICAL HERNIA REPAIR [None]
  - WOUND DRAINAGE [None]
